FAERS Safety Report 24759588 (Version 1)
Quarter: 2024Q4

REPORT INFORMATION
  Report Type: Spontaneous
  Country: US (occurrence: US)
  Receive Date: 20241220
  Receipt Date: 20241220
  Transmission Date: 20250114
  Serious: No
  Sender: SANOFI AVENTIS
  Company Number: US-SA-2024SA375574

PATIENT
  Age: 33 Year

DRUGS (1)
  1. LANTUS [Suspect]
     Active Substance: INSULIN GLARGINE
     Indication: Type V hyperlipidaemia
     Dosage: 7 IU, QD
     Route: 058

REACTIONS (1)
  - Off label use [Unknown]
